FAERS Safety Report 8119016-7 (Version None)
Quarter: 2012Q1

REPORT INFORMATION
  Report Type: 
  Country: None (occurrence: None)
  Receive Date: 20120207
  Receipt Date: 20120125
  Transmission Date: 20120608
  Serious: Yes (Other)
  Sender: FDA-Public Use
  Company Number: US-ELI_LILLY_AND_COMPANY-US201101001438

PATIENT
  Sex: Female

DRUGS (9)
  1. VITAMINS NOS [Concomitant]
  2. FORTEO [Suspect]
     Dosage: 20 UG, QD
  3. FORTEO [Suspect]
     Dosage: 20 UG, QD
     Route: 065
  4. CALCIUM [Concomitant]
  5. FORTEO [Suspect]
     Indication: OSTEOPOROSIS
     Dosage: 20 UG, QD
     Route: 065
     Dates: start: 20110413
  6. FORTEO [Suspect]
     Dosage: 20 UG, QD
  7. ZETIA [Concomitant]
  8. FORTEO [Suspect]
     Dosage: 20 UG, QD
     Route: 065
  9. FORTEO [Suspect]
     Dosage: 20 UG, QD
     Route: 065

REACTIONS (9)
  - NAUSEA [None]
  - MALIGNANT MELANOMA [None]
  - FATIGUE [None]
  - ADVERSE DRUG REACTION [None]
  - VOMITING [None]
  - HEADACHE [None]
  - ARTHRITIS [None]
  - MUSCULAR WEAKNESS [None]
  - ASTHENIA [None]
